FAERS Safety Report 5606786-2 (Version None)
Quarter: 2008Q1

REPORT INFORMATION
  Report Type: 
  Country: None (occurrence: None)
  Receive Date: 20080129
  Receipt Date: 20080121
  Transmission Date: 20080703
  Serious: Yes (Hospitalization)
  Sender: FDA-Public Use
  Company Number: NL-RANBAXY-2008RR-12694

PATIENT

DRUGS (2)
  1. AMLODIPINE BASICS 5MG TABLETS [Suspect]
     Indication: OVERDOSE
     Dosage: 5 MG, UNK
  2. LORAZEPAM [Suspect]
     Indication: OVERDOSE
     Dosage: 1 MG, UNK

REACTIONS (1)
  - POISONING [None]
